FAERS Safety Report 5005886-8 (Version None)
Quarter: 2006Q2

REPORT INFORMATION
  Report Type: 
  Country: None (occurrence: None)
  Receive Date: 20060515
  Receipt Date: 20060502
  Transmission Date: 20061013
  Serious: Yes (Death, Other)
  Sender: FDA-Public Use
  Company Number: USA-2006-0024143

PATIENT
  Age: 38 Year
  Sex: Male
  Weight: 80.7 kg

DRUGS (11)
  1. OXYCODONE HYDROCHLORIDE (SIMILAR TO NDA 20-553 (OXYODONE HYDROCHLORIDE [Suspect]
  2. MORPHINE SULFATE [Suspect]
  3. FENTANYL [Suspect]
  4. COCAINE(COCAINE) [Suspect]
  5. ALPRAZOLAM [Suspect]
  6. DIAZEPAM [Suspect]
  7. ACETAMINOPHEN [Suspect]
  8. CANNABIS (CANNABIS) [Suspect]
  9. DIPHENHYDRAMINE HCL [Suspect]
  10. OXAZEPAM [Suspect]
  11. TEMAZEPAM [Suspect]

REACTIONS (2)
  - DRUG TOXICITY [None]
  - POLYSUBSTANCE ABUSE [None]
